FAERS Safety Report 23814905 (Version 1)
Quarter: 2024Q2

REPORT INFORMATION
  Report Type: Spontaneous
  Country: US (occurrence: US)
  Receive Date: 20240503
  Receipt Date: 20240503
  Transmission Date: 20240715
  Serious: No
  Sender: FDA-Public Use
  Company Number: US-MYLANLABS-2024M1038383

PATIENT
  Age: 66 Year
  Sex: Female

DRUGS (1)
  1. TYRVAYA [Suspect]
     Active Substance: VARENICLINE TARTRATE
     Indication: Product used for unknown indication
     Dosage: UNK
     Route: 045
     Dates: start: 20240411

REACTIONS (4)
  - Headache [Unknown]
  - Eye pain [Unknown]
  - Nasal discomfort [Unknown]
  - Throat irritation [Unknown]

NARRATIVE: CASE EVENT DATE: 20240411
